FAERS Safety Report 12886556 (Version 3)
Quarter: 2017Q1

REPORT INFORMATION
  Report Type: Report from Study
  Country: CA (occurrence: CA)
  Receive Date: 20161026
  Receipt Date: 20170216
  Transmission Date: 20170428
  Serious: Yes (Hospitalization)
  Sender: FDA-Public Use
  Company Number: CA-JNJFOC-20161014815

PATIENT
  Age: 76 Year
  Sex: Male

DRUGS (4)
  1. STELARA [Suspect]
     Active Substance: USTEKINUMAB
     Indication: COLITIS
     Route: 058
     Dates: start: 20130304
  2. STELARA [Suspect]
     Active Substance: USTEKINUMAB
     Indication: CROHN^S DISEASE
     Route: 058
     Dates: start: 20130304
  3. STELARA [Suspect]
     Active Substance: USTEKINUMAB
     Indication: COLITIS
     Route: 058
     Dates: start: 20160304
  4. STELARA [Suspect]
     Active Substance: USTEKINUMAB
     Indication: CROHN^S DISEASE
     Route: 058
     Dates: start: 20160304

REACTIONS (6)
  - Eating disorder [Unknown]
  - Gastric cancer [Unknown]
  - Off label use [Unknown]
  - Catheter site infection [Recovered/Resolved]
  - Product use issue [Unknown]
  - Asthenia [Unknown]

NARRATIVE: CASE EVENT DATE: 2013
